FAERS Safety Report 8554903-7 (Version None)
Quarter: 2012Q3

REPORT INFORMATION
  Report Type: 
  Country: None (occurrence: None)
  Receive Date: 20120731
  Receipt Date: 20120723
  Transmission Date: 20120928
  Serious: Yes (Other)
  Sender: FDA-Public Use
  Company Number: CH-ELI_LILLY_AND_COMPANY-CH201206006023

PATIENT
  Age: 64 Year
  Sex: Female
  Weight: 72 kg

DRUGS (4)
  1. FORTEO [Suspect]
     Indication: OSTEOPOROSIS
     Dosage: UNK UNK, QD
     Route: 058
     Dates: start: 20110320
  2. ASPIRIN [Concomitant]
     Dosage: 100 MG, QD
     Route: 048
  3. CALCII CARBONAS [Concomitant]
  4. CALCIMAGON D3 [Concomitant]
     Dosage: UNK UNK, QD
     Route: 048

REACTIONS (1)
  - HYPERTENSIVE CRISIS [None]
